FAERS Safety Report 8822766 (Version 1)
Quarter: 2012Q4

REPORT INFORMATION
  Report Type: 
  Country: US (occurrence: US)
  Receive Date: 20121003
  Receipt Date: 20121003
  Transmission Date: 20130627
  Serious: No
  Sender: FDA-Public Use
  Company Number: US-VERTEX PHARMACEUTICAL INC.-2012-020987

PATIENT
  Sex: Female

DRUGS (10)
  1. VX-950 [Suspect]
     Indication: HEPATITIS C
     Dosage: 750 mg, tid
     Route: 048
  2. PEGASYS [Concomitant]
     Indication: HEPATITIS C
  3. RIBAVIRIN [Concomitant]
     Indication: HEPATITIS C
     Dosage: 200 mg, UNK
  4. WELLBUTRIN [Concomitant]
     Dosage: 100 mg, UNK
  5. PROZAC [Concomitant]
     Dosage: 10 mg, UNK
  6. ALBUTEROL                          /00139501/ [Concomitant]
     Dosage: 90 ?g, UNK
  7. SPIRIVA HANDIHALER [Concomitant]
  8. PREVACID [Concomitant]
     Dosage: 15 mg, UNK
  9. GINGER ROOT [Concomitant]
     Dosage: 250 mg, UNK
  10. HYDROCHLOROTH [Concomitant]
     Dosage: 12.5 mg, UNK

REACTIONS (7)
  - Dyspnoea [Not Recovered/Not Resolved]
  - Heart rate increased [Unknown]
  - Dizziness [Not Recovered/Not Resolved]
  - Headache [Not Recovered/Not Resolved]
  - Pallor [Not Recovered/Not Resolved]
  - Fatigue [Not Recovered/Not Resolved]
  - Anaemia [Not Recovered/Not Resolved]
